FAERS Safety Report 21628416 (Version 1)
Quarter: 2022Q4

REPORT INFORMATION
  Report Type: Spontaneous
  Country: US (occurrence: None)
  Receive Date: 20221121
  Receipt Date: 20221121
  Transmission Date: 20230113
  Serious: Yes (Hospitalization)
  Sender: FDA-Public Use
  Company Number: None

PATIENT
  Age: 28 Year
  Sex: Female
  Weight: 106.3 kg

DRUGS (2)
  1. CANAGLIFLOZIN [Suspect]
     Active Substance: CANAGLIFLOZIN
     Indication: Type 2 diabetes mellitus
     Dosage: FREQUENCY : DAILY;?
     Route: 048
  2. SEMAGLUTIDE [Concomitant]
     Active Substance: SEMAGLUTIDE
     Dates: start: 20220926

REACTIONS (3)
  - Euglycaemic diabetic ketoacidosis [None]
  - Anion gap increased [None]
  - PCO2 decreased [None]

NARRATIVE: CASE EVENT DATE: 20221115
